FAERS Safety Report 15068358 (Version 1)
Quarter: 2018Q2

REPORT INFORMATION
  Report Type: Spontaneous
  Country: US (occurrence: US)
  Receive Date: 20180626
  Receipt Date: 20180626
  Transmission Date: 20180711
  Serious: No
  Sender: FDA-Public Use
  Company Number: US-ASTRAZENECA-2018SE79706

PATIENT
  Sex: Male
  Weight: 104.3 kg

DRUGS (5)
  1. PRADAXA [Concomitant]
     Active Substance: DABIGATRAN ETEXILATE MESYLATE
     Indication: ATRIAL FIBRILLATION
     Dosage: 150
     Route: 048
  2. METOPROLOL SUCCINATE. [Suspect]
     Active Substance: METOPROLOL SUCCINATE
     Indication: BLOOD PRESSURE ABNORMAL
     Route: 048
  3. METOPROLOL SUCCINATE. [Suspect]
     Active Substance: METOPROLOL SUCCINATE
     Indication: ARRHYTHMIA
     Route: 048
  4. BRILINTA [Suspect]
     Active Substance: TICAGRELOR
     Indication: STENT PLACEMENT
     Route: 048
  5. LOSARTAN POTASSIUM. [Concomitant]
     Active Substance: LOSARTAN POTASSIUM
     Indication: BLOOD PRESSURE ABNORMAL
     Route: 048
     Dates: start: 201706

REACTIONS (16)
  - Arthralgia [Unknown]
  - Arrhythmia [Unknown]
  - Increased tendency to bruise [Unknown]
  - Muscular weakness [Not Recovered/Not Resolved]
  - Tooth fracture [Unknown]
  - Dyspnoea at rest [Not Recovered/Not Resolved]
  - Tooth pulp haemorrhage [Unknown]
  - Weight loss poor [Not Recovered/Not Resolved]
  - Visual impairment [Unknown]
  - Insomnia [Unknown]
  - Off label use [Unknown]
  - Tooth infection [Unknown]
  - Dyspnoea exertional [Unknown]
  - Fatigue [Unknown]
  - Exercise tolerance decreased [Not Recovered/Not Resolved]
  - Libido decreased [Unknown]
